FAERS Safety Report 10620397 (Version 3)
Quarter: 2015Q2

REPORT INFORMATION
  Report Type: Spontaneous
  Country: US (occurrence: US)
  Receive Date: 20141202
  Receipt Date: 20150429
  Transmission Date: 20150821
  Serious: Yes (Disabling)
  Sender: FDA-Public Use
  Company Number: US-009507513-1205USA05014

PATIENT
  Sex: Male
  Weight: 97.51 kg

DRUGS (1)
  1. PROPECIA [Suspect]
     Active Substance: FINASTERIDE
     Indication: ALOPECIA
     Dosage: 1 MG, UNK
     Route: 048
     Dates: start: 1998, end: 20080402

REACTIONS (17)
  - Anxiety [Not Recovered/Not Resolved]
  - Ejaculation disorder [Not Recovered/Not Resolved]
  - Sexual dysfunction [Not Recovered/Not Resolved]
  - Depression [Not Recovered/Not Resolved]
  - Hydrocele [Unknown]
  - Libido decreased [Not Recovered/Not Resolved]
  - Insomnia [Unknown]
  - Hyperlipidaemia [Unknown]
  - Breast enlargement [Unknown]
  - Varicocele [Unknown]
  - Cognitive disorder [Not Recovered/Not Resolved]
  - Erectile dysfunction [Not Recovered/Not Resolved]
  - Haematuria [Unknown]
  - Blood testosterone decreased [Unknown]
  - Nephrolithiasis [Unknown]
  - Ejaculation failure [Not Recovered/Not Resolved]
  - Epididymal cyst [Unknown]

NARRATIVE: CASE EVENT DATE: 2004
